FAERS Safety Report 6058412-9 (Version None)
Quarter: 2009Q1

REPORT INFORMATION
  Report Type: 
  Country: None (occurrence: None)
  Receive Date: 20090128
  Receipt Date: 20090128
  Transmission Date: 20090719
  Serious: Yes (Other)
  Sender: FDA-Public Use
  Company Number: None

PATIENT
  Sex: Female
  Weight: 59.09 kg

DRUGS (8)
  1. SIMVASTATIN [Suspect]
     Dosage: 40MG TABLET 40 MG QHS ORAL
     Route: 048
     Dates: start: 20071128, end: 20090127
  2. ASPIRIN [Concomitant]
  3. CALCIUM CARBONATE [Concomitant]
  4. DYAZIDE (TRIAMTERENE [Concomitant]
  5. FLUOXETINE HCL [Concomitant]
  6. KCL SLOW RELEASE TAB [Concomitant]
  7. LEVOTHROID [Concomitant]
  8. PRILOSEC OTC (OMEPRAZOLE OTC) [Concomitant]

REACTIONS (1)
  - MYALGIA [None]
